FAERS Safety Report 6490365-1 (Version None)
Quarter: 2009Q4

REPORT INFORMATION
  Report Type: 
  Country: None (occurrence: None)
  Receive Date: 20091211
  Receipt Date: 20091203
  Transmission Date: 20100525
  Serious: Yes (Hospitalization, Other)
  Sender: FDA-Public Use
  Company Number: GB-ABBOTT-07P-167-0371555-00

PATIENT
  Age: 55 Year
  Sex: Female
  Weight: 60 kg

DRUGS (25)
  1. SEVOFLURANE [Suspect]
     Indication: GENERAL ANAESTHESIA
     Dosage: NOT REPORTED
     Dates: start: 20061201, end: 20061201
  2. ISOFLURANE [Interacting]
     Indication: MAINTENANCE OF ANAESTHESIA
     Dosage: 0.9-1.4%
     Route: 055
     Dates: start: 20060601, end: 20060601
  3. ISOFLURANE [Interacting]
  4. DEXAMETHASONE TAB [Interacting]
     Indication: GENERAL ANAESTHESIA
     Dates: start: 20050701, end: 20050701
  5. DEXAMETHASONE TAB [Interacting]
     Dates: start: 20061201
  6. GABAPENTIN [Interacting]
     Indication: MUSCULOSKELETAL PAIN
     Route: 048
     Dates: start: 20050501, end: 20061211
  7. GABAPENTIN [Interacting]
     Indication: NEURALGIA
  8. GABAPENTIN [Interacting]
  9. GABAPENTIN [Interacting]
     Indication: PAIN
  10. FENTANYL [Interacting]
     Indication: INDUCTION OF ANAESTHESIA
     Route: 042
     Dates: start: 20050701, end: 20050701
  11. FENTANYL [Interacting]
     Indication: OSTEOTOMY
     Dates: start: 20060601
  12. FENTANYL [Interacting]
     Dates: start: 20061201
  13. ALFENTANIL [Interacting]
     Indication: GENERAL ANAESTHESIA
     Route: 042
     Dates: start: 20050701, end: 20050701
  14. ALFENTANIL [Interacting]
     Indication: OSTEOTOMY
  15. PROPOFOL [Interacting]
     Indication: INDUCTION OF ANAESTHESIA
     Route: 042
     Dates: start: 20050701
  16. PROPOFOL [Interacting]
     Indication: OSTEOTOMY
     Dates: start: 20060601, end: 20060601
  17. PROPOFOL [Interacting]
  18. OXYGEN [Concomitant]
     Indication: MAINTENANCE OF ANAESTHESIA
     Route: 055
     Dates: start: 20060601
  19. OXYGEN [Concomitant]
     Dosage: NOT REPORTED
     Route: 055
     Dates: start: 20061201
  20. DEXAMETHASONE TAB [Concomitant]
     Indication: DRUG USE FOR UNKNOWN INDICATION
     Route: 042
  21. UNSPECIFIED OPIOIDS [Concomitant]
     Indication: DRUG USE FOR UNKNOWN INDICATION
     Dosage: NOT REPORTED
  22. PARACETAMOL [Concomitant]
     Indication: MUSCULOSKELETAL PAIN
     Route: 048
     Dates: start: 20050501
  23. PARACETAMOL [Concomitant]
     Indication: PAIN
  24. CODEINE [Concomitant]
     Indication: MUSCULOSKELETAL PAIN
     Dates: start: 20050501
  25. AIR [Concomitant]
     Indication: MAINTENANCE OF ANAESTHESIA
     Route: 055
     Dates: start: 20060601

REACTIONS (4)
  - DRUG INTERACTION [None]
  - DYSTONIA [None]
  - MYOTONIA [None]
  - SINUS TACHYCARDIA [None]
